FAERS Safety Report 8947495 (Version 1)
Quarter: 2012Q4

REPORT INFORMATION
  Report Type: 
  Country: CN (occurrence: CN)
  Receive Date: 20121204
  Receipt Date: 20121204
  Transmission Date: 20130627
  Serious: Yes (Other)
  Sender: FDA-Public Use
  Company Number: CN-009507513-1211CHN010837

PATIENT
  Age: 47 Year
  Sex: Female

DRUGS (1)
  1. CLARITYNE [Suspect]
     Indication: HYPERSENSITIVITY
     Dosage: UNK, qd
     Route: 048
     Dates: start: 20110328, end: 20110328

REACTIONS (1)
  - Urticaria [Recovering/Resolving]
